FAERS Safety Report 10649733 (Version 1)
Quarter: 2014Q4

REPORT INFORMATION
  Report Type: Spontaneous
  Country: US (occurrence: US)
  Receive Date: 20141212
  Receipt Date: 20141212
  Transmission Date: 20150529
  Serious: No
  Sender: FDA-Public Use
  Company Number: US-TEVA-528376USA

PATIENT
  Sex: Male
  Weight: 77.18 kg

DRUGS (3)
  1. ACTIQ [Suspect]
     Active Substance: FENTANYL CITRATE
     Indication: SPINAL PAIN
     Route: 065
     Dates: start: 2001
  2. MICARDIS [Concomitant]
     Active Substance: TELMISARTAN
     Indication: MYOCARDIAL INFARCTION
  3. MS CONTIN [Concomitant]
     Active Substance: MORPHINE SULFATE
     Indication: PAIN IN EXTREMITY

REACTIONS (2)
  - Tooth loss [Unknown]
  - Off label use [Unknown]

NARRATIVE: CASE EVENT DATE: 2001
